FAERS Safety Report 19777875 (Version 1)
Quarter: 2021Q3

REPORT INFORMATION
  Report Type: Spontaneous
  Country: US (occurrence: US)
  Receive Date: 20210901
  Receipt Date: 20210901
  Transmission Date: 20211014
  Serious: Yes (Other)
  Sender: FDA-Public Use
  Company Number: None

PATIENT
  Age: 37 Year
  Sex: Male
  Weight: 80 kg

DRUGS (2)
  1. REGEN?COV [Suspect]
     Active Substance: CASIRIVIMAB\IMDEVIMAB
     Indication: COVID-19
     Dates: start: 20210825, end: 20210825
  2. ALBUTEROL INHALER [Concomitant]
     Active Substance: ALBUTEROL
     Dates: start: 20210820

REACTIONS (3)
  - Oxygen saturation decreased [None]
  - Pyrexia [None]
  - Dyspnoea [None]

NARRATIVE: CASE EVENT DATE: 20210825
